FAERS Safety Report 14977904 (Version 1)
Quarter: 2018Q2

REPORT INFORMATION
  Report Type: Spontaneous
  Country: US (occurrence: US)
  Receive Date: 20180515
  Receipt Date: 20180515
  Transmission Date: 20180711
  Serious: Yes (Congenital Anomaly)
  Sender: FDA-Public Use
  Company Number: None

PATIENT
  Age: 50 Year
  Sex: Male
  Weight: 65.25 kg

DRUGS (1)
  1. FENOFIBRATE 134MG [Suspect]
     Active Substance: FENOFIBRATE
     Dosage: ?          QUANTITY:90 DF DOSAGE FORM;?
     Route: 048
     Dates: start: 20171029, end: 20180310

REACTIONS (1)
  - Loss of libido [None]

NARRATIVE: CASE EVENT DATE: 20180320
